FAERS Safety Report 5932430-0 (Version None)
Quarter: 2008Q4

REPORT INFORMATION
  Report Type: 
  Country: None (occurrence: None)
  Receive Date: 20081009
  Receipt Date: 20071127
  Transmission Date: 20090506
  Serious: Yes (Other)
  Sender: FDA-Public Use
  Company Number: PHEH2007US11602

PATIENT
  Age: 50 Year
  Sex: Male

DRUGS (1)
  1. ZOMETA [Suspect]
     Indication: PROSTATE CANCER
     Dosage: 4 MG Q4W, INTRAVENOUS
     Route: 042
     Dates: start: 20020101, end: 20070101

REACTIONS (13)
  - BONE DISORDER [None]
  - DEBRIDEMENT [None]
  - GINGIVAL ERYTHEMA [None]
  - GINGIVAL INFECTION [None]
  - GINGIVAL PAIN [None]
  - GINGIVAL SWELLING [None]
  - INCISIONAL DRAINAGE [None]
  - INFLAMMATION [None]
  - ORAL DISORDER [None]
  - OSTEONECROSIS [None]
  - PURULENCE [None]
  - RESORPTION BONE INCREASED [None]
  - TOOTH ABSCESS [None]
